FAERS Safety Report 9321432 (Version 2)
Quarter: 2013Q2

REPORT INFORMATION
  Report Type: Report from Study
  Country: FR (occurrence: FR)
  Receive Date: 20130531
  Receipt Date: 20130604
  Transmission Date: 20140414
  Serious: Yes (Hospitalization)
  Sender: FDA-Public Use
  Company Number: FR-ROCHE-1228848

PATIENT
  Sex: Male

DRUGS (4)
  1. BEVACIZUMAB [Suspect]
     Indication: COLORECTAL CANCER METASTATIC
     Dosage: ADMINISTERED DOSE DURING THE LAST CYCLE WAS OF 270 MG
     Route: 065
  2. IRINOTECAN [Suspect]
     Indication: COLORECTAL CANCER METASTATIC
     Dosage: ADMINISTERED DOSE DURING THE LAST CYCLE WAS OF 290 MG
     Route: 065
  3. FOLINIC ACID [Suspect]
     Indication: COLORECTAL CANCER METASTATIC
     Dosage: ADMINISTERED DOSE DURING THE LAST CYCLE WAS OF 322 MG
     Route: 065
  4. 5-FLUOROURACIL [Suspect]
     Indication: COLORECTAL CANCER METASTATIC
     Dosage: ADMINISTERED DOSE DURING THE LAST CYCLE WAS OF 640 MG IN BOLUS AND 3860 MG AS CONTINUOUS DOSING
     Route: 042

REACTIONS (1)
  - Small intestinal obstruction [Recovering/Resolving]
